FAERS Safety Report 25641624 (Version 1)
Quarter: 2025Q3

REPORT INFORMATION
  Report Type: Spontaneous
  Country: GB (occurrence: GB)
  Receive Date: 20250804
  Receipt Date: 20250804
  Transmission Date: 20251021
  Serious: Yes (Disabling, Other)
  Sender: GE HEALTHCARE
  Company Number: None

PATIENT
  Age: 61 Year
  Sex: Female
  Weight: 64 kg

DRUGS (1)
  1. CLARISCAN [Suspect]
     Active Substance: GADOTERATE MEGLUMINE
     Indication: Magnetic resonance imaging abdominal
     Route: 065

REACTIONS (4)
  - Confusional state [Unknown]
  - Hypotonia [Unknown]
  - Cough [Unknown]
  - Dizziness [Unknown]
